FAERS Safety Report 12985068 (Version 1)
Quarter: 2016Q4

REPORT INFORMATION
  Report Type: Spontaneous
  Country: US (occurrence: US)
  Receive Date: 20161129
  Receipt Date: 20161129
  Transmission Date: 20170207
  Serious: No
  Sender: FDA-Public Use
  Company Number: US-TEIKOKU PHARMA USA-TPU2016-00810

PATIENT
  Sex: Female
  Weight: 47.22 kg

DRUGS (3)
  1. LIDOCAINE PATCH [Suspect]
     Active Substance: LIDOCAINE
     Indication: PROCEDURAL PAIN
     Dosage: USED 3 PATCHES IN TOTAL, UP TO 12 HOURS
     Dates: start: 201611
  2. MORPHINE SULFATE ER TABLETS30 MG MALLINCKRODT [Suspect]
     Active Substance: MORPHINE SULFATE
  3. SYNTHROID [Concomitant]
     Active Substance: LEVOTHYROXINE SODIUM
     Indication: THYROID OPERATION
     Dates: start: 1981

REACTIONS (1)
  - Gastrointestinal disorder [Unknown]
